FAERS Safety Report 5176549-3 (Version None)
Quarter: 2006Q4

REPORT INFORMATION
  Report Type: 
  Country: None (occurrence: None)
  Receive Date: 20061206
  Receipt Date: 20061121
  Transmission Date: 20070319
  Serious: Yes (Hospitalization)
  Sender: FDA-Public Use
  Company Number: 232022

PATIENT
  Age: 31 Year
  Sex: Male
  Weight: 89.9 kg

DRUGS (4)
  1. AVASTIN (BEVACIVUMAB) PWDR + SOLVENT, INFUSION SOLN, 100 MG [Suspect]
     Indication: COLON CANCER
     Dosage: 445 MG, Q2W, INTRAVENOUS, SEE IMAGE
     Route: 042
     Dates: start: 20051025
  2. OXALIPLATIN [Suspect]
     Indication: COLON CANCER
     Dosage: 170 MG, Q2W, INTRAVENOUS
     Route: 042
     Dates: start: 20051025, end: 20060404
  3. LEUCOVORIN CALCIUM [Suspect]
     Indication: COLON CANCER
     Dosage: 800 MG, Q2W, INTRAVENOUS
     Route: 042
     Dates: start: 20051025, end: 20060421
  4. FLUOROURACIL [Suspect]
     Indication: COLON CANCER
     Dosage: 400 MG, IV BOLUS, SEE IMAGE
     Route: 040
     Dates: start: 20051025, end: 20060421

REACTIONS (3)
  - CELLULITIS [None]
  - PERINEAL ABSCESS [None]
  - THERAPY NON-RESPONDER [None]
